FAERS Safety Report 4991200-0 (Version None)
Quarter: 2006Q2

REPORT INFORMATION
  Report Type: 
  Country: None (occurrence: None)
  Receive Date: 20060504
  Receipt Date: 20060322
  Transmission Date: 20061013
  Serious: Yes (Hospitalization)
  Sender: FDA-Public Use
  Company Number: US-ROCHE-441727

PATIENT
  Age: 63 Year
  Sex: Female
  Weight: 88 kg

DRUGS (9)
  1. XENICAL [Suspect]
     Route: 048
     Dates: start: 20060312, end: 20060312
  2. ROCEPHIN [Suspect]
     Route: 042
     Dates: start: 20060315
  3. WELLBUTRIN [Concomitant]
     Indication: DEPRESSION
     Route: 048
  4. PROZAC [Concomitant]
     Indication: DEPRESSION
     Route: 048
  5. HYDROCHLOROTHIAZIDE [Concomitant]
     Route: 048
  6. LISINOPRIL [Concomitant]
     Route: 048
  7. RITALIN [Concomitant]
     Indication: LEARNING DISABILITY
     Route: 048
  8. VITAMINS NOS [Concomitant]
     Route: 048
  9. DIAZEPAM [Concomitant]
     Route: 048

REACTIONS (16)
  - AMNESIA [None]
  - BLOOD CREATINE PHOSPHOKINASE INCREASED [None]
  - BLOOD CREATININE INCREASED [None]
  - CELLULITIS [None]
  - CEREBRAL ISCHAEMIA [None]
  - CONFUSIONAL STATE [None]
  - CONVULSION [None]
  - ENCEPHALITIS [None]
  - FALL [None]
  - HEADACHE [None]
  - INAPPROPRIATE AFFECT [None]
  - NAUSEA [None]
  - SCIATICA [None]
  - SKIN LACERATION [None]
  - TRANSIENT ISCHAEMIC ATTACK [None]
  - VOMITING [None]
